FAERS Safety Report 6648148-5 (Version None)
Quarter: 2010Q1

REPORT INFORMATION
  Report Type: 
  Country: None (occurrence: None)
  Receive Date: 20100324
  Receipt Date: 20100316
  Transmission Date: 20100710
  Serious: Yes (Hospitalization)
  Sender: FDA-Public Use
  Company Number: FR-BRISTOL-MYERS SQUIBB COMPANY-15028897

PATIENT
  Age: 83 Year
  Sex: Female

DRUGS (13)
  1. CARBIDOPA + LEVODOPA [Suspect]
     Indication: PARKINSON'S DISEASE
     Dosage: 3 DF = 3 TABS
     Route: 048
     Dates: start: 20060101, end: 20080804
  2. PAROXETINE HCL [Suspect]
     Indication: DEPRESSION
     Dosage: UNK- 30JUL08 40MG/D: 31JUL08-03AUG08(4 DAYS) 20MG/D: 04AUG08-CONT FORM: TAB
     Route: 048
     Dates: start: 20080731
  3. NOCTRAN [Suspect]
     Indication: INSOMNIA
     Dosage: JAN08-20JUL08(10MG) 21JUL08-04AUG08(15D);15MG
     Route: 048
     Dates: start: 20080101, end: 20080804
  4. DOLIPRANE [Concomitant]
  5. MUCOMYST [Concomitant]
  6. GELOX [Concomitant]
  7. ZINNAT [Concomitant]
     Dates: start: 20080717, end: 20080725
  8. FLECAINIDE ACETATE [Concomitant]
  9. FUROSEMIDE [Concomitant]
  10. IRBESARTAN [Concomitant]
  11. DUPHALAC [Concomitant]
  12. NITRODERM [Concomitant]
  13. CORTANCYL [Concomitant]
     Dates: start: 20080807

REACTIONS (2)
  - GENERAL PHYSICAL HEALTH DETERIORATION [None]
  - SOMNOLENCE [None]
